FAERS Safety Report 10341187 (Version 1)
Quarter: 2014Q3

REPORT INFORMATION
  Report Type: Spontaneous
  Country: DE (occurrence: DE)
  Receive Date: 20140724
  Receipt Date: 20140724
  Transmission Date: 20150326
  Serious: Yes (Death, Hospitalization)
  Sender: FDA-Public Use
  Company Number: PHHY2014DE090081

PATIENT
  Age: 67 Year
  Sex: Male

DRUGS (10)
  1. PACLITAXEL. [Suspect]
     Active Substance: PACLITAXEL
     Indication: CHEMOTHERAPY
  2. GABAPENTIN. [Suspect]
     Active Substance: GABAPENTIN
  3. SORAFENIB [Suspect]
     Active Substance: SORAFENIB
     Indication: CHEMOTHERAPY
  4. PEMETREXED [Suspect]
     Active Substance: PEMETREXED
  5. ERLOTINIB [Concomitant]
     Active Substance: ERLOTINIB
  6. VINORELBINE [Concomitant]
     Active Substance: VINORELBINE\VINORELBINE TARTRATE
  7. CARBOPLATIN. [Suspect]
     Active Substance: CARBOPLATIN
     Indication: CHEMOTHERAPY
  8. DOCETAXEL [Suspect]
     Active Substance: DOCETAXEL
     Indication: CHEMOTHERAPY
  9. ZOLEDRONATE [Concomitant]
     Active Substance: ZOLEDRONIC ACID
  10. RED BLOOD CELLS, CONCENTRATED [Concomitant]
     Active Substance: HUMAN RED BLOOD CELL

REACTIONS (9)
  - Diarrhoea [Unknown]
  - Vomiting [Unknown]
  - Non-small cell lung cancer [Unknown]
  - Death [Fatal]
  - Oedema peripheral [Unknown]
  - Drug ineffective [Unknown]
  - Metastases to central nervous system [Unknown]
  - Asthenia [Unknown]
  - Malignant pleural effusion [Unknown]
